FAERS Safety Report 5678571-7 (Version None)
Quarter: 2008Q1

REPORT INFORMATION
  Report Type: 
  Country: None (occurrence: None)
  Receive Date: 20080325
  Receipt Date: 20080321
  Transmission Date: 20080703
  Serious: Yes (Death, Other)
  Sender: FDA-Public Use
  Company Number: PHEH2008US01414

PATIENT
  Age: 73 Year
  Sex: Male

DRUGS (1)
  1. EXJADE [Suspect]
     Indication: LYMPHOPROLIFERATIVE DISORDER
     Dosage: 500MG 4 DAILY
     Route: 048
     Dates: start: 20071109, end: 20080124

REACTIONS (2)
  - DEAFNESS [None]
  - DEATH [None]
